FAERS Safety Report 10832888 (Version 1)
Quarter: 2015Q1

REPORT INFORMATION
  Report Type: Report from Study
  Country: US (occurrence: US)
  Receive Date: 20150219
  Receipt Date: 20150219
  Transmission Date: 20150721
  Serious: No
  Sender: FDA-Public Use
  Company Number: US-ABBVIE-14P-163-1200520-00

PATIENT
  Age: 54 Year
  Sex: Female

DRUGS (6)
  1. POTASSIUM [Concomitant]
     Active Substance: POTASSIUM
     Indication: HYPERTENSION
  2. LOVAZA [Concomitant]
     Active Substance: OMEGA-3-ACID ETHYL ESTERS
     Indication: BLOOD CHOLESTEROL INCREASED
  3. HUMIRA [Suspect]
     Active Substance: ADALIMUMAB
     Indication: PSORIATIC ARTHROPATHY
     Dates: start: 20120614
  4. COZAAR [Concomitant]
     Active Substance: LOSARTAN POTASSIUM
     Indication: HYPERTENSION
  5. METFORMIN [Concomitant]
     Active Substance: METFORMIN HYDROCHLORIDE
     Indication: DIABETES MELLITUS
  6. VERELAN [Concomitant]
     Active Substance: VERAPAMIL HYDROCHLORIDE
     Indication: PRODUCT USED FOR UNKNOWN INDICATION

REACTIONS (4)
  - Upper-airway cough syndrome [Not Recovered/Not Resolved]
  - Paranasal sinus discomfort [Unknown]
  - Nasopharyngitis [Not Recovered/Not Resolved]
  - Throat irritation [Recovered/Resolved]

NARRATIVE: CASE EVENT DATE: 2014
